FAERS Safety Report 8291512-1 (Version None)
Quarter: 2012Q2

REPORT INFORMATION
  Report Type: 
  Country: None (occurrence: None)
  Receive Date: 20120417
  Receipt Date: 20120412
  Transmission Date: 20120825
  Serious: No
  Sender: FDA-Public Use
  Company Number: US-PFIZER INC-2012092069

PATIENT
  Sex: Female
  Weight: 90.7 kg

DRUGS (4)
  1. IBUPROFEN (ADVIL) [Suspect]
     Indication: EYE DISORDER
     Dosage: 200 MG, 2X/DAY
     Route: 048
     Dates: start: 20120407, end: 20120409
  2. LOPRESSOR [Suspect]
     Dosage: UNK
     Route: 048
  3. COZAAR [Concomitant]
     Dosage: 50 MG, DAILY
  4. LANTUS [Concomitant]
     Indication: DIABETES MELLITUS
     Dosage: 40 IU, DAILY

REACTIONS (3)
  - HYPERSENSITIVITY [None]
  - HYPERTENSION [None]
  - DRUG INTOLERANCE [None]
